FAERS Safety Report 4875208-1 (Version None)
Quarter: 2006Q1

REPORT INFORMATION
  Report Type: 
  Country: None (occurrence: None)
  Receive Date: 20060104
  Receipt Date: 20051223
  Transmission Date: 20060701
  Serious: Yes (Hospitalization)
  Sender: FDA-Public Use
  Company Number: 2005173177

PATIENT
  Age: 49 Year
  Sex: Male

DRUGS (8)
  1. VIRACEPT [Suspect]
     Indication: HIV INFECTION
     Dosage: 5 DOSES (2 IN 1 D), ORAL
     Route: 048
     Dates: start: 20051130
  2. PREVISCAN (FLUINDIONE) [Suspect]
     Indication: ILL-DEFINED DISORDER
     Dosage: ORAL
     Route: 048
  3. SOTALOL HCL [Suspect]
     Indication: ILL-DEFINED DISORDER
     Dosage: 1 TABLET (2 IN 1 D), ORAL
     Route: 048
  4. GABAPENTIN [Suspect]
     Indication: ILL-DEFINED DISORDER
     Dosage: 1200 MG (1200 MG, 1 IN 1 D), ORAL
     Route: 048
  5. EPIVIR [Suspect]
     Indication: HIV INFECTION
     Dosage: 2 DOSES (2 IN 1 D), ORAL
     Route: 048
     Dates: start: 19970929
  6. ZIAGEN [Suspect]
     Indication: HIV INFECTION
     Dosage: 2 DOSES (2 IN 1 D), ORAL
     Route: 048
     Dates: start: 20010919
  7. CITALOPRAM HYDROBROMIDE [Concomitant]
  8. CLONAZEPAM [Concomitant]

REACTIONS (3)
  - ACUTE CORONARY SYNDROME [None]
  - ATRIAL FLUTTER [None]
  - CORONARY ARTERY STENOSIS [None]
